FAERS Safety Report 6366972-3 (Version None)
Quarter: 2009Q3

REPORT INFORMATION
  Report Type: 
  Country: None (occurrence: None)
  Receive Date: 20090915
  Receipt Date: 20090909
  Transmission Date: 20100115
  Serious: Yes (Other)
  Sender: FDA-Public Use
  Company Number: SPV1-2009-01809

PATIENT
  Age: 47 Year
  Sex: Female

DRUGS (1)
  1. FOSRENOL [Suspect]
     Dosage: 30 MG,
     Dates: start: 20090201, end: 20090701

REACTIONS (1)
  - TOOTH FRACTURE [None]
